FAERS Safety Report 13436273 (Version 4)
Quarter: 2017Q2

REPORT INFORMATION
  Report Type: Spontaneous
  Country: US (occurrence: US)
  Receive Date: 20170413
  Receipt Date: 20170608
  Transmission Date: 20170830
  Serious: Yes (Hospitalization, Other)
  Sender: FDA-Public Use
  Company Number: US-PFIZER INC-2017154632

PATIENT
  Age: 71 Year
  Sex: Female

DRUGS (8)
  1. GABAPENTIN. [Concomitant]
     Active Substance: GABAPENTIN
     Indication: SEIZURE
     Dosage: UNK, (1-3 T A DAY)
  2. PRIMIDONE. [Concomitant]
     Active Substance: PRIMIDONE
     Dosage: 100 MG, 1-2 TIMES A DAY
  3. FORTEO [Concomitant]
     Active Substance: TERIPARATIDE
     Dosage: 20 MG (PEN SHOT IN STOMACH), 1X/DAY
  4. FISH OIL [Concomitant]
     Active Substance: FISH OIL
     Indication: EYE DISORDER
     Dosage: 1 DF, 1-3 TAB A DAY
  5. VITAMIN D3 [Concomitant]
     Active Substance: CHOLECALCIFEROL
     Indication: BONE DISORDER
     Dosage: UNK UNK, 1X/DAY
  6. MULTI VIT [Concomitant]
     Indication: BONE DISORDER
     Dosage: UNK UNK, 1X/DAY
  7. DILANTIN [Suspect]
     Active Substance: PHENYTOIN
     Indication: SEIZURE
     Dosage: UNK, 1-3 TIMES A DAY
     Dates: start: 1977
  8. FOSAMAX [Suspect]
     Active Substance: ALENDRONATE SODIUM
     Indication: OSTEOPOROSIS
     Dosage: 70 MG, WEEKLY
     Dates: end: 201603

REACTIONS (2)
  - Femur fracture [Unknown]
  - Fall [Not Recovered/Not Resolved]

NARRATIVE: CASE EVENT DATE: 20160530
